FAERS Safety Report 10455783 (Version 4)
Quarter: 2015Q1

REPORT INFORMATION
  Report Type: Spontaneous
  Country: US (occurrence: US)
  Receive Date: 20140916
  Receipt Date: 20150316
  Transmission Date: 20150720
  Serious: Yes (Other)
  Sender: FDA-Public Use
  Company Number: US-ASTELLAS-2014US006952

PATIENT
  Age: 86 Year
  Sex: Male

DRUGS (2)
  1. XTANDI [Suspect]
     Active Substance: ENZALUTAMIDE
     Indication: PROSTATE CANCER
     Route: 048
     Dates: start: 20140221
  2. XTANDI [Suspect]
     Active Substance: ENZALUTAMIDE
     Route: 048
     Dates: end: 20150122

REACTIONS (5)
  - Oesophageal carcinoma [Not Recovered/Not Resolved]
  - Pruritus [Unknown]
  - Product size issue [Unknown]
  - Underdose [Unknown]
  - Dysphagia [Unknown]

NARRATIVE: CASE EVENT DATE: 201501
